FAERS Safety Report 13075922 (Version 1)
Quarter: 2016Q4

REPORT INFORMATION
  Report Type: Spontaneous
  Country: US (occurrence: US)
  Receive Date: 20161230
  Receipt Date: 20161230
  Transmission Date: 20170207
  Serious: No
  Sender: FDA-Public Use
  Company Number: None

PATIENT
  Sex: Female

DRUGS (3)
  1. SUTENT [Suspect]
     Active Substance: SUNITINIB MALATE
  2. TORISEL [Suspect]
     Active Substance: TEMSIROLIMUS
  3. INLYTA [Concomitant]
     Active Substance: AXITINIB

REACTIONS (6)
  - Pulmonary oedema [None]
  - Blister [None]
  - Drug ineffective [None]
  - Vomiting [None]
  - Cardiac disorder [None]
  - Abasia [None]
